FAERS Safety Report 10785836 (Version 2)
Quarter: 2015Q4

REPORT INFORMATION
  Report Type: Spontaneous
  Country: FR (occurrence: FR)
  Receive Date: 20150211
  Receipt Date: 20151020
  Transmission Date: 20160304
  Serious: Yes (Hospitalization)
  Sender: FDA-Public Use
  Company Number: FR-PFIZER INC-2015051200

PATIENT
  Age: 60 Year
  Sex: Female

DRUGS (14)
  1. CIFLOX [Suspect]
     Active Substance: CIPROFLOXACIN
     Dosage: UNK
     Dates: end: 20150102
  2. PARACETAMOL [Concomitant]
     Active Substance: ACETAMINOPHEN
     Dosage: 1 G, 4X/DAY
     Route: 048
  3. LOVENOX [Concomitant]
     Active Substance: ENOXAPARIN SODIUM
     Dosage: 1 DF, 1X/DAY
     Route: 058
  4. EUCREAS [Concomitant]
     Active Substance: METFORMIN HYDROCHLORIDE\VILDAGLIPTIN
     Indication: TYPE 2 DIABETES MELLITUS
     Dosage: 1 DF, 2X/DAY
     Route: 048
  5. LERCAN [Concomitant]
     Active Substance: LERCANIDIPINE
     Indication: HYPERTENSION
     Dosage: 20 MG, 1X/DAY
     Route: 048
  6. TARDYFERON [Concomitant]
     Active Substance: FERROUS SULFATE\FOLIC ACID
     Dosage: 80 MG, 1X/DAY
     Route: 048
  7. DIFFU-K [Concomitant]
     Active Substance: POTASSIUM CHLORIDE
     Dosage: 600 MG, 4X/DAY
     Route: 048
  8. TAZOCILLINE [Suspect]
     Active Substance: PIPERACILLIN SODIUM\TAZOBACTAM SODIUM
     Indication: OSTEITIS
     Dosage: 1 DF, 3X/DAY
     Route: 042
     Dates: start: 20141121, end: 20141215
  9. CRESTOR [Concomitant]
     Active Substance: ROSUVASTATIN CALCIUM
     Dosage: 5 MG, 1X/DAY
     Route: 048
  10. CIFLOX [Suspect]
     Active Substance: CIPROFLOXACIN
     Indication: OSTEITIS
     Dosage: 750 MG, 2X/DAY
     Route: 048
     Dates: start: 20141121, end: 20141215
  11. KARDEGIC [Concomitant]
     Active Substance: ASPIRIN LYSINE
     Dosage: 75 MG, 1X/DAY
     Route: 048
  12. TEMERIT [Concomitant]
     Active Substance: NEBIVOLOL
     Dosage: 0.5 DF, 2X/DAY
     Route: 048
  13. LANTUS SOLOSTAR [Concomitant]
     Active Substance: INSULIN GLARGINE
     Dosage: 26 IU, DAILY
     Route: 058
  14. HUMALOG [Concomitant]
     Active Substance: INSULIN LISPRO
     Dosage: 5 IU, DAILY
     Route: 058

REACTIONS (1)
  - Drug reaction with eosinophilia and systemic symptoms [Recovering/Resolving]

NARRATIVE: CASE EVENT DATE: 201412
